FAERS Safety Report 7266935-X (Version None)
Quarter: 2011Q1

REPORT INFORMATION
  Report Type: 
  Country: None (occurrence: None)
  Receive Date: 20110201
  Receipt Date: 20110124
  Transmission Date: 20110831
  Serious: Yes (Hospitalization, Other)
  Sender: FDA-Public Use
  Company Number: US-BAYER-200925484NA

PATIENT
  Sex: Female
  Weight: 49 kg

DRUGS (37)
  1. OPTIMARK [Suspect]
     Indication: COMPUTERISED TOMOGRAM
  2. VASOTEC [Concomitant]
     Dosage: 10 MG DAILY
     Dates: start: 19990101
  3. VISIPAQUE [Concomitant]
     Indication: VENOGRAM
  4. OPTIMARK [Suspect]
     Indication: NUCLEAR MAGNETIC RESONANCE IMAGING
  5. MULTIHANCE [Suspect]
     Indication: NUCLEAR MAGNETIC RESONANCE IMAGING
  6. PROHANCE [Suspect]
     Indication: ANGIOGRAM
  7. RENAGEL [Concomitant]
     Dosage: 3 TO 6 TABLETS WITH MEALS
     Route: 048
  8. HYDROCORTISONE [Concomitant]
     Dosage: 20 MG IN THE MORNING AND 10 MG AT NIGHT
     Route: 048
  9. ASPIRIN [Concomitant]
     Dosage: 81 MG, QD
     Route: 048
  10. ARANESP [Concomitant]
     Dosage: 40 ?G (DAILY DOSE), OW, SUBCUTANEOUS
     Route: 058
     Dates: start: 20051024
  11. MULTIHANCE [Suspect]
     Indication: COMPUTERISED TOMOGRAM
  12. MULTIHANCE [Suspect]
     Indication: ANGIOGRAM
  13. PROHANCE [Suspect]
     Indication: NUCLEAR MAGNETIC RESONANCE IMAGING
  14. PRILOSEC [Concomitant]
     Dosage: 40 MG (DAILY DOSE), QD, ORAL
     Route: 048
  15. VANCOMYCIN [Concomitant]
  16. OMNISCAN [Suspect]
     Indication: ANGIOGRAM
  17. COUMADIN [Concomitant]
     Dosage: 2 MG AND 3 MG DAILY ALTERNATE EVERY OTHER DAY
     Route: 048
     Dates: start: 20000101
  18. VENOFER [Concomitant]
     Dosage: 100 MNG (DAILY DOSE), OW, INTRAVENOUS
     Route: 042
  19. FERRLECIT [Concomitant]
     Dosage: 100 MG (DAILY DOSE), EVERY FRIDAY
     Route: 048
  20. ANALGESICS [Concomitant]
  21. EPOGEN [Concomitant]
     Dosage: EVERY WEDNESDAY
     Route: 042
  22. SYNTHROID [Concomitant]
     Dosage: 200 MCG DAILY AND 150 MCG ON SUNDAY
     Route: 048
  23. NORVASC [Concomitant]
     Dosage: 10 MG DAILY
     Dates: start: 19950101
  24. MAGNEVIST [Suspect]
     Indication: ANGIOGRAM
     Route: 042
     Dates: start: 20031206, end: 20031206
  25. OPTIMARK [Suspect]
     Indication: ANGIOGRAM
  26. PHOSLO [Concomitant]
     Dosage: 667 MG, QD
     Route: 048
  27. NEPHRO-VITE [VITAMINS NOS] [Concomitant]
     Dosage: 1 DF, QD
  28. ZEMPLAR [Concomitant]
     Dosage: DURING DIALYSIS
     Route: 042
  29. MAGNEVIST [Suspect]
     Indication: NUCLEAR MAGNETIC RESONANCE IMAGING
     Dosage: UNK
     Dates: start: 20021129, end: 20021129
  30. MAGNEVIST [Suspect]
     Indication: NUCLEAR MAGNETIC RESONANCE IMAGING BRAIN
     Route: 042
     Dates: start: 20030926, end: 20030926
  31. PROHANCE [Suspect]
     Indication: COMPUTERISED TOMOGRAM
  32. FLUDROCORTISONE [Concomitant]
     Dosage: 0.1 MG, QD
     Route: 048
  33. PROAMATINE [Concomitant]
     Dosage: 30 MG EVERY M-W-F
     Route: 048
  34. OMNISCAN [Suspect]
     Indication: NUCLEAR MAGNETIC RESONANCE IMAGING
  35. OMNISCAN [Suspect]
     Indication: COMPUTERISED TOMOGRAM
  36. DIATX [Concomitant]
     Dosage: 1 DF, QD
     Route: 048
  37. PROVERA [Concomitant]
     Dosage: 10 MG 5 DAYS EVERY OTHER MONTH
     Route: 048
     Dates: start: 20030101

REACTIONS (16)
  - PAIN [None]
  - RASH PAPULAR [None]
  - NEPHROGENIC SYSTEMIC FIBROSIS [None]
  - MOTOR DYSFUNCTION [None]
  - SKIN INDURATION [None]
  - SKIN FIBROSIS [None]
  - SKIN ATROPHY [None]
  - SEPTIC SHOCK [None]
  - URAEMIC ENCEPHALOPATHY [None]
  - SKIN EXFOLIATION [None]
  - RASH [None]
  - SKIN PLAQUE [None]
  - DEFORMITY [None]
  - SCAR [None]
  - SKIN HYPOPIGMENTATION [None]
  - ERYTHEMA [None]
